FAERS Safety Report 13854981 (Version 1)
Quarter: 2017Q3

REPORT INFORMATION
  Report Type: Spontaneous
  Country: US (occurrence: US)
  Receive Date: 20170810
  Receipt Date: 20170810
  Transmission Date: 20171127
  Serious: No
  Sender: FDA-Public Use
  Company Number: US-BRAINTREE LABORATORIES-160277-2

PATIENT
  Age: 73 Year
  Sex: Female

DRUGS (1)
  1. GOLYTELY [Suspect]
     Active Substance: POLYETHYLENE GLYCOL 3350\POTASSIUM CHLORIDE\SODIUM BICARBONATE\SODIUM CHLORIDE\SODIUM SULFATE ANHYDROUS
     Indication: COLONOSCOPY
     Dosage: ~3.5L
     Route: 048
     Dates: start: 20160411, end: 20160412

REACTIONS (8)
  - Dyspnoea [None]
  - Feeling hot [None]
  - Anaphylactic reaction [None]
  - Nausea [None]
  - Lacrimation increased [None]
  - Rhinorrhoea [None]
  - Headache [None]
  - Vomiting [None]

NARRATIVE: CASE EVENT DATE: 20160411
